FAERS Safety Report 16170825 (Version 1)
Quarter: 2019Q2

REPORT INFORMATION
  Report Type: Spontaneous
  Country: GR (occurrence: GR)
  Receive Date: 20190408
  Receipt Date: 20190408
  Transmission Date: 20190711
  Serious: Yes (Disabling)
  Sender: FDA-Public Use
  Company Number: GR-ROCHE-2298987

PATIENT
  Age: 35 Year
  Sex: Male
  Weight: 120 kg

DRUGS (2)
  1. CAMPTO [Concomitant]
     Active Substance: IRINOTECAN
     Route: 042
     Dates: start: 20130517, end: 20130726
  2. AVASTIN [Suspect]
     Active Substance: BEVACIZUMAB
     Indication: PRODUCT USED FOR UNKNOWN INDICATION
     Route: 042
     Dates: start: 20130517, end: 20130726

REACTIONS (2)
  - Hemiplegia [Unknown]
  - Ischaemic cerebral infarction [Unknown]

NARRATIVE: CASE EVENT DATE: 20130730
